FAERS Safety Report 4730192-6 (Version None)
Quarter: 2005Q3

REPORT INFORMATION
  Report Type: 
  Country: None (occurrence: None)
  Receive Date: 20050801
  Receipt Date: 20050718
  Transmission Date: 20060218
  Serious: Yes (Hospitalization)
  Sender: FDA-Public Use
  Company Number: FR-GLAXOSMITHKLINE-B0388282A

PATIENT
  Age: 52 Year
  Sex: Male

DRUGS (5)
  1. ONDANSETRON [Suspect]
     Indication: VOMITING
     Dosage: 8MG CYCLIC
     Route: 048
     Dates: start: 20050214, end: 20050314
  2. PRIMPERAN INJ [Suspect]
     Indication: VOMITING
     Dosage: 1UNIT CYCLIC
     Route: 048
     Dates: start: 20050308, end: 20050314
  3. SOLU-MEDROL [Suspect]
     Dosage: 80MG CYCLIC
     Route: 042
     Dates: start: 20050214, end: 20050314
  4. CISPLATIN [Suspect]
     Dosage: 50MG CYCLIC
     Route: 042
     Dates: start: 20050214, end: 20050314
  5. ETHYOL [Suspect]
     Dosage: 400MG CYCLIC
     Route: 042
     Dates: start: 20050214, end: 20050317

REACTIONS (6)
  - BLISTER [None]
  - PRURITUS [None]
  - PYREXIA [None]
  - RASH MACULO-PAPULAR [None]
  - SKIN DISORDER [None]
  - TOXIC EPIDERMAL NECROLYSIS [None]
